FAERS Safety Report 21621895 (Version 1)
Quarter: 2022Q4

REPORT INFORMATION
  Report Type: Spontaneous
  Country: PL (occurrence: PL)
  Receive Date: 20221121
  Receipt Date: 20221121
  Transmission Date: 20230113
  Serious: Yes (Other)
  Sender: FDA-Public Use
  Company Number: PL-PFIZER INC-PV202200101013

PATIENT
  Age: 58 Year

DRUGS (1)
  1. TEMSIROLIMUS [Suspect]
     Active Substance: TEMSIROLIMUS
     Indication: Palliative care
     Dosage: UNK UNK, CYCLIC

REACTIONS (3)
  - Type 2 diabetes mellitus [Unknown]
  - Therapeutic product effect incomplete [Unknown]
  - Blood creatinine increased [Unknown]
